FAERS Safety Report 14640867 (Version 2)
Quarter: 2018Q2

REPORT INFORMATION
  Report Type: Spontaneous
  Country: US (occurrence: US)
  Receive Date: 20180315
  Receipt Date: 20180502
  Transmission Date: 20180711
  Serious: No
  Sender: FDA-Public Use
  Company Number: US-BRISTOL-MYERS SQUIBB COMPANY-BMS-2018-024095

PATIENT
  Age: 61 Year
  Sex: Female
  Weight: 88.4 kg

DRUGS (1)
  1. ELIQUIS [Suspect]
     Active Substance: APIXABAN
     Indication: CEREBROVASCULAR ACCIDENT PROPHYLAXIS
     Dosage: 5 MG, BID
     Route: 048
     Dates: start: 201604

REACTIONS (3)
  - Injury [Unknown]
  - Peripheral swelling [Unknown]
  - Limb injury [Unknown]

NARRATIVE: CASE EVENT DATE: 201709
